FAERS Safety Report 20757333 (Version 29)
Quarter: 2023Q1

REPORT INFORMATION
  Report Type: Report from Study
  Country: CN (occurrence: CN)
  Receive Date: 20220427
  Receipt Date: 20230303
  Transmission Date: 20230418
  Serious: Yes (Death, Life-Threatening, Hospitalization, Other)
  Sender: FDA-Public Use
  Company Number: CN-TAKEDA-2022TUS026493

PATIENT
  Age: 49 Year
  Sex: Male
  Weight: 52 kg

DRUGS (5)
  1. BRENTUXIMAB VEDOTIN [Suspect]
     Active Substance: BRENTUXIMAB VEDOTIN
     Indication: Angioimmunoblastic T-cell lymphoma
     Dosage: 90 MILLIGRAM, Q3WEEKS
     Route: 041
     Dates: start: 20220106
  2. PIPERACILLIN AND TAZOBACTAM [Suspect]
     Active Substance: PIPERACILLIN SODIUM\TAZOBACTAM SODIUM
     Indication: Product used for unknown indication
     Dosage: UNK
     Route: 065
  3. GEMCITABINE HYDROCHLORIDE [Concomitant]
     Active Substance: GEMCITABINE HYDROCHLORIDE
     Indication: Lymphoma
     Dosage: 1.6 GRAM
     Route: 042
     Dates: start: 20220107, end: 20220107
  4. OXALIPLATIN [Concomitant]
     Active Substance: OXALIPLATIN
     Indication: Lymphoma
     Dosage: 160 MILLIGRAM
     Route: 042
     Dates: start: 20220107, end: 20220107
  5. ETOPOSIDE [Concomitant]
     Active Substance: ETOPOSIDE
     Indication: Lymphoma
     Dosage: 75 MILLIGRAM, QD
     Route: 042
     Dates: start: 20220107, end: 20220110

REACTIONS (19)
  - Death [Fatal]
  - White blood cell count decreased [Recovering/Resolving]
  - Platelet count decreased [Not Recovered/Not Resolved]
  - Lymphocyte count decreased [Not Recovered/Not Resolved]
  - Myelosuppression [Unknown]
  - Bronchopulmonary aspergillosis [Not Recovered/Not Resolved]
  - Hypokalaemia [Not Recovered/Not Resolved]
  - Upper gastrointestinal haemorrhage [Recovered/Resolved]
  - Abdominal infection [Not Recovered/Not Resolved]
  - Pneumonia bacterial [Not Recovered/Not Resolved]
  - Coagulopathy [Not Recovered/Not Resolved]
  - Cough [Recovering/Resolving]
  - Anaemia [Recovered/Resolved]
  - Diarrhoea [Recovering/Resolving]
  - Hyponatraemia [Not Recovered/Not Resolved]
  - Hypoglycaemia [Recovered/Resolved]
  - Hypersensitivity [Recovered/Resolved]
  - Oral infection [Not Recovered/Not Resolved]
  - Off label use [Unknown]

NARRATIVE: CASE EVENT DATE: 20220106
